FAERS Safety Report 10055760 (Version 1)
Quarter: 2014Q2

REPORT INFORMATION
  Report Type: Spontaneous
  Country: JP (occurrence: None)
  Receive Date: 20140401
  Receipt Date: 20140401
  Transmission Date: 20141212
  Serious: Yes (Death)
  Sender: FDA-Public Use
  Company Number: 2014P1002284

PATIENT
  Age: 52 Year
  Sex: Female

DRUGS (2)
  1. RISPERIDONE [Suspect]
     Route: 048
     Dates: start: 20120101, end: 20120108
  2. ETHANOL [Suspect]
     Route: 048
     Dates: start: 20120107, end: 20120107

REACTIONS (7)
  - Visceral congestion [None]
  - Conjunctival haemorrhage [None]
  - Semen viscosity decreased [None]
  - Completed suicide [None]
  - Sudden death [None]
  - Toxicity to various agents [None]
  - Alcohol interaction [None]
